FAERS Safety Report 7007496-X (Version None)
Quarter: 2010Q3

REPORT INFORMATION
  Report Type: 
  Country: None (occurrence: None)
  Receive Date: 20100920
  Receipt Date: 20100818
  Transmission Date: 20110219
  Serious: Yes (Hospitalization, Other)
  Sender: FDA-Public Use
  Company Number: ACO_01699_2010

PATIENT
  Sex: Female
  Weight: 56.6996 kg

DRUGS (11)
  1. AMPYRA [Suspect]
     Indication: GAIT DISTURBANCE
     Dosage: 10 MG BID ORAL
     Route: 048
     Dates: start: 20100730, end: 20100730
  2. ZANAFLEX [Suspect]
     Dosage: DF
  3. NEURONTIN [Concomitant]
  4. AMANTADINE [Concomitant]
  5. AMITIZA [Concomitant]
  6. MICARDIS [Concomitant]
  7. VESICARE [Concomitant]
  8. KEFLEX [Concomitant]
  9. CALCIUM +VIT D [Concomitant]
  10. OTHER MEDICATIONS FOR MULTIPLE SCLEROSIS [Concomitant]
  11. ANTIHYPERTENSIVES [Concomitant]

REACTIONS (13)
  - AMNESIA [None]
  - BLOOD GLUCOSE INCREASED [None]
  - BLOOD PROLACTIN INCREASED [None]
  - BRUXISM [None]
  - CONFUSIONAL STATE [None]
  - CRYING [None]
  - CYSTITIS [None]
  - DISORIENTATION [None]
  - GRAND MAL CONVULSION [None]
  - INAPPROPRIATE SCHEDULE OF DRUG ADMINISTRATION [None]
  - PROTEIN TOTAL DECREASED [None]
  - SOMNOLENCE [None]
  - WHITE BLOOD CELLS URINE POSITIVE [None]
